FAERS Safety Report 19669682 (Version 2)
Quarter: 2022Q1

REPORT INFORMATION
  Report Type: Spontaneous
  Country: US (occurrence: None)
  Receive Date: 20210806
  Receipt Date: 20220329
  Transmission Date: 20220423
  Serious: Yes (Other)
  Sender: FDA-Public Use
  Company Number: 2018SF34370

PATIENT
  Age: 45 Year
  Sex: Female
  Weight: 113.4 kg

DRUGS (46)
  1. NEXIUM [Suspect]
     Active Substance: ESOMEPRAZOLE MAGNESIUM
     Indication: Gastrooesophageal reflux disease
     Route: 048
     Dates: start: 1990, end: 2018
  2. NEXIUM [Suspect]
     Active Substance: ESOMEPRAZOLE MAGNESIUM
     Indication: Gastrooesophageal reflux disease
     Route: 048
     Dates: start: 2001, end: 2018
  3. PRILOSEC [Suspect]
     Active Substance: OMEPRAZOLE MAGNESIUM
     Indication: Gastrooesophageal reflux disease
     Route: 048
     Dates: start: 1990, end: 2018
  4. PRILOSEC [Suspect]
     Active Substance: OMEPRAZOLE MAGNESIUM
     Indication: Gastrooesophageal reflux disease
     Dosage: GENERIC
     Route: 065
     Dates: start: 2010, end: 2016
  5. PRILOSEC OTC [Suspect]
     Active Substance: OMEPRAZOLE MAGNESIUM
     Indication: Gastrooesophageal reflux disease
     Route: 048
     Dates: start: 1990, end: 2018
  6. PRILOSEC OTC [Suspect]
     Active Substance: OMEPRAZOLE MAGNESIUM
     Indication: Gastrooesophageal reflux disease
     Route: 048
     Dates: start: 2003, end: 2018
  7. PROTONIX [Suspect]
     Active Substance: PANTOPRAZOLE SODIUM
     Indication: Gastrooesophageal reflux disease
     Route: 065
     Dates: start: 1990, end: 2018
  8. PROTONIX [Suspect]
     Active Substance: PANTOPRAZOLE SODIUM
     Indication: Gastrooesophageal reflux disease
     Route: 065
     Dates: start: 2000, end: 2018
  9. PROTONIX [Suspect]
     Active Substance: PANTOPRAZOLE SODIUM
     Indication: Gastrooesophageal reflux disease
     Route: 065
     Dates: start: 2012
  10. FUROSEMIDE [Concomitant]
     Active Substance: FUROSEMIDE
     Indication: Fluid retention
  11. TRAZODONE [Concomitant]
     Active Substance: TRAZODONE HYDROCHLORIDE
     Indication: Pain
  12. TYLENOL [Concomitant]
     Active Substance: ACETAMINOPHEN
     Indication: Pain
  13. FAMOTIDINE [Concomitant]
     Active Substance: FAMOTIDINE
     Dates: start: 2017
  14. RANITIDINE [Concomitant]
     Active Substance: RANITIDINE
  15. TUMS [Concomitant]
     Active Substance: CALCIUM CARBONATE
  16. BUPROPION [Concomitant]
     Active Substance: BUPROPION
  17. LORATADINE [Concomitant]
     Active Substance: LORATADINE
  18. OXYCODONE [Concomitant]
     Active Substance: OXYCODONE
  19. TIZANIDINE [Concomitant]
     Active Substance: TIZANIDINE
  20. CLINDAMYCIN [Concomitant]
     Active Substance: CLINDAMYCIN
  21. CLONAZEPAM [Concomitant]
     Active Substance: CLONAZEPAM
  22. DICYCLOMINE [Concomitant]
     Active Substance: DICYCLOMINE HYDROCHLORIDE
  23. LIDOCAINE [Concomitant]
     Active Substance: LIDOCAINE
  24. NYSTATIN [Concomitant]
     Active Substance: NYSTATIN
  25. OLOPATADINE [Concomitant]
     Active Substance: OLOPATADINE
  26. DIAZEPAM [Concomitant]
     Active Substance: DIAZEPAM
  27. ACETAMINOPHEN\HYDROCODONE BITARTRATE [Concomitant]
     Active Substance: ACETAMINOPHEN\HYDROCODONE BITARTRATE
  28. ACYCLOVIR [Concomitant]
     Active Substance: ACYCLOVIR
  29. HYDROXYZINE [Concomitant]
     Active Substance: HYDROXYZINE HYDROCHLORIDE
  30. DOXYCYCLINE HYCLATE [Concomitant]
     Active Substance: DOXYCYCLINE HYCLATE
  31. CEPHALEXIN [Concomitant]
     Active Substance: CEPHALEXIN
  32. TIZANIDINE HYDROCHLORIDE [Concomitant]
     Active Substance: TIZANIDINE HYDROCHLORIDE
  33. ALPRAZOLAM [Concomitant]
     Active Substance: ALPRAZOLAM
  34. CYCLOBENZAPRINE [Concomitant]
     Active Substance: CYCLOBENZAPRINE
  35. CLONAZEPAM [Concomitant]
     Active Substance: CLONAZEPAM
  36. METOCLOPRAMIDE [Concomitant]
     Active Substance: METOCLOPRAMIDE
  37. TEMAZEPAM [Concomitant]
     Active Substance: TEMAZEPAM
  38. ATORVASTATIN [Concomitant]
     Active Substance: ATORVASTATIN
  39. PATADAY [Concomitant]
     Active Substance: OLOPATADINE HYDROCHLORIDE
  40. MORPHINE SULFATE [Concomitant]
     Active Substance: MORPHINE SULFATE
  41. POTASSIUM CHLORIDE [Concomitant]
     Active Substance: POTASSIUM CHLORIDE
  42. OXYCODONE HYDROCHLORIDE [Concomitant]
     Active Substance: OXYCODONE HYDROCHLORIDE
  43. CHANTIX [Concomitant]
     Active Substance: VARENICLINE TARTRATE
  44. FLUCELVAX NOS [Concomitant]
     Active Substance: INFLUENZA A VIRUS A/BRISBANE/10/2010 (H1N1) ANTIGEN (MDCK CELL DERIVED, PROPIOLACTONE INACTIVATED)\I
  45. AMOXICILLIN\CLAVULANATE POTASSIUM [Concomitant]
     Active Substance: AMOXICILLIN\CLAVULANATE POTASSIUM
  46. METAXALONE [Concomitant]
     Active Substance: METAXALONE

REACTIONS (4)
  - Chronic kidney disease [Not Recovered/Not Resolved]
  - Acute kidney injury [Not Recovered/Not Resolved]
  - Renal failure [Unknown]
  - Gastrooesophageal reflux disease [Not Recovered/Not Resolved]

NARRATIVE: CASE EVENT DATE: 20170101
